FAERS Safety Report 5604678-6 (Version None)
Quarter: 2008Q1

REPORT INFORMATION
  Report Type: 
  Country: None (occurrence: None)
  Receive Date: 20080124
  Receipt Date: 20080124
  Transmission Date: 20080703
  Serious: Yes (Other)
  Sender: FDA-Public Use
  Company Number: None

PATIENT
  Age: 18 Year
  Sex: Female
  Weight: 68 kg

DRUGS (1)
  1. ACETYLCYSTEINE [Suspect]
     Indication: OVERDOSE
     Dosage: 10200MG IV OVER 15 MINUTES 6800 MG IV OVER 4 H THEN 6800MG IV OVER 16 HOURS
     Route: 042
     Dates: start: 20080123, end: 20080124

REACTIONS (4)
  - ERYTHEMA [None]
  - INFUSION RELATED REACTION [None]
  - RESPIRATORY DISTRESS [None]
  - VOMITING [None]
